FAERS Safety Report 11065072 (Version 2)
Quarter: 2015Q2

REPORT INFORMATION
  Report Type: Spontaneous
  Country: US (occurrence: US)
  Receive Date: 20150424
  Receipt Date: 20150525
  Transmission Date: 20150821
  Serious: No
  Sender: FDA-Public Use
  Company Number: US-JNJFOC-20131009865

PATIENT
  Sex: Female
  Weight: 71.67 kg

DRUGS (4)
  1. LOSARTAN [Concomitant]
     Active Substance: LOSARTAN
  2. CARVEDILOL. [Concomitant]
     Active Substance: CARVEDILOL
  3. TOPAMAX [Suspect]
     Active Substance: TOPIRAMATE
     Indication: HEADACHE
     Route: 048
  4. SIMVASTATIN. [Concomitant]
     Active Substance: SIMVASTATIN

REACTIONS (3)
  - Adverse drug reaction [Unknown]
  - Paraesthesia [Not Recovered/Not Resolved]
  - Drug ineffective [Unknown]
